FAERS Safety Report 5391557-5 (Version None)
Quarter: 2007Q3

REPORT INFORMATION
  Report Type: 
  Country: None (occurrence: None)
  Receive Date: 20070719
  Receipt Date: 20070709
  Transmission Date: 20080115
  Serious: Yes (Other)
  Sender: FDA-Public Use
  Company Number: AR-PFIZER INC-2007038044

PATIENT
  Sex: Female

DRUGS (2)
  1. SUTENT [Suspect]
  2. LOSARTAN POTASSIUM [Concomitant]

REACTIONS (1)
  - MYOCARDIAL ISCHAEMIA [None]
